FAERS Safety Report 5771547-0 (Version None)
Quarter: 2008Q2

REPORT INFORMATION
  Report Type: 
  Country: None (occurrence: None)
  Receive Date: 20080611
  Receipt Date: 20080527
  Transmission Date: 20081010
  Serious: Yes (Life-Threatening)
  Sender: FDA-Public Use
  Company Number: 2008S1009372

PATIENT
  Age: 39 Year
  Sex: Male

DRUGS (1)
  1. BISOPROLOL TABLETS (BISOPROLOL) [Suspect]
     Indication: ANGINA PECTORIS
     Dosage: 5 MG; ORAL
     Route: 048
     Dates: start: 20080303, end: 20080324

REACTIONS (2)
  - DEPRESSION [None]
  - SUICIDAL IDEATION [None]
